FAERS Safety Report 9959255 (Version 1)
Quarter: 2014Q1

REPORT INFORMATION
  Report Type: Report from Study
  Country: US (occurrence: US)
  Receive Date: 20140305
  Receipt Date: 20140305
  Transmission Date: 20141002
  Serious: No
  Sender: FDA-Public Use
  Company Number: US-ABBVIE-13P-163-1102348-00

PATIENT
  Age: 69 Year
  Sex: Female

DRUGS (4)
  1. HUMIRA [Suspect]
     Indication: COLITIS ULCERATIVE
     Dates: start: 20130416
  2. PREDNISONE [Concomitant]
     Indication: COLITIS
  3. DELZICOL [Concomitant]
     Indication: COLITIS
  4. AZATHIOPRINE [Concomitant]
     Indication: COLITIS

REACTIONS (1)
  - Increased tendency to bruise [Not Recovered/Not Resolved]
